FAERS Safety Report 9357859 (Version 2)
Quarter: 2013Q3

REPORT INFORMATION
  Report Type: Spontaneous
  Country: GB (occurrence: GB)
  Receive Date: 20130620
  Receipt Date: 20130711
  Transmission Date: 20140515
  Serious: Yes (Other)
  Sender: FDA-Public Use
  Company Number: GB-EISAI INC-E2090-02646-SPO-GB

PATIENT
  Age: 23 Year
  Sex: Female
  Weight: 53.5 kg

DRUGS (2)
  1. ZONISAMIDE [Suspect]
     Indication: EPILEPSY
     Route: 048
     Dates: start: 201008
  2. PERFECTIL [Concomitant]
     Dosage: UNKNOWN

REACTIONS (2)
  - Abortion induced [Recovered/Resolved]
  - Exposure during pregnancy [None]
